FAERS Safety Report 4581104-X (Version None)
Quarter: 2005Q1

REPORT INFORMATION
  Report Type: 
  Country: None (occurrence: None)
  Receive Date: 20050214
  Receipt Date: 20040806
  Transmission Date: 20050727
  Serious: No
  Sender: FDA-Public Use
  Company Number: US-GLAXOSMITHKLINE-A0521302A

PATIENT
  Age: 56 Year
  Sex: Female

DRUGS (4)
  1. LAMICTAL [Suspect]
     Indication: BIPOLAR DISORDER
     Dosage: 25MG PER DAY
     Route: 048
     Dates: start: 20040805
  2. VALIUM [Concomitant]
  3. XANAX [Concomitant]
  4. ADVIL [Concomitant]

REACTIONS (4)
  - HEADACHE [None]
  - INSOMNIA [None]
  - PAIN [None]
  - SENSORY DISTURBANCE [None]
